FAERS Safety Report 25035051 (Version 1)
Quarter: 2025Q1

REPORT INFORMATION
  Report Type: Report from Study
  Country: IT (occurrence: IT)
  Receive Date: 20250304
  Receipt Date: 20250304
  Transmission Date: 20250409
  Serious: Yes (Other)
  Sender: NOVARTIS
  Company Number: IT-002147023-NVSC2023IT277313

PATIENT
  Age: 60 Year
  Sex: Male

DRUGS (2)
  1. COSENTYX [Suspect]
     Active Substance: SECUKINUMAB
     Indication: Psoriatic arthropathy
     Route: 065
     Dates: start: 20210617
  2. COSENTYX [Suspect]
     Active Substance: SECUKINUMAB
     Dosage: 300 MG, QMO
     Route: 058

REACTIONS (10)
  - Carotid artery stenosis [Unknown]
  - Pain [Unknown]
  - Musculoskeletal stiffness [Not Recovered/Not Resolved]
  - Temperature intolerance [Unknown]
  - Pyrexia [Not Recovered/Not Resolved]
  - Arthralgia [Not Recovered/Not Resolved]
  - Pain in extremity [Unknown]
  - Drug ineffective [Unknown]
  - Spinal pain [Not Recovered/Not Resolved]
  - Hernia [Not Recovered/Not Resolved]

NARRATIVE: CASE EVENT DATE: 20231107
